FAERS Safety Report 18031403 (Version 1)
Quarter: 2020Q3

REPORT INFORMATION
  Report Type: Spontaneous
  Country: US (occurrence: US)
  Receive Date: 20200715
  Receipt Date: 20200715
  Transmission Date: 20201103
  Serious: Yes (Death)
  Sender: FDA-Public Use
  Company Number: None

PATIENT
  Age: 77 Year
  Sex: Female

DRUGS (13)
  1. ADEMPAS [Suspect]
     Active Substance: RIOCIGUAT
     Indication: PULMONARY ARTERIAL HYPERTENSION
     Route: 048
     Dates: start: 201810
  2. LOSARTAN. [Concomitant]
     Active Substance: LOSARTAN
  3. HUMULIN N [Concomitant]
     Active Substance: INSULIN HUMAN
  4. PRADAXA [Concomitant]
     Active Substance: DABIGATRAN ETEXILATE MESYLATE
  5. CEFTRIAXONE. [Concomitant]
     Active Substance: CEFTRIAXONE
  6. NARCAN [Concomitant]
     Active Substance: NALOXONE HYDROCHLORIDE
  7. LEVOTHYROXINE. [Concomitant]
     Active Substance: LEVOTHYROXINE
  8. ATORVASTATIN [Concomitant]
     Active Substance: ATORVASTATIN
  9. GLIPIZIDE. [Concomitant]
     Active Substance: GLIPIZIDE
  10. FUROSEMIDE. [Concomitant]
     Active Substance: FUROSEMIDE
  11. AMPICILLIN [Concomitant]
     Active Substance: AMPICILLIN
  12. PANTOPRAZOLE [Concomitant]
     Active Substance: PANTOPRAZOLE
  13. BUPROPION. [Concomitant]
     Active Substance: BUPROPION

REACTIONS (11)
  - Nausea [None]
  - Respiratory failure [None]
  - Atrial fibrillation [None]
  - Abdominal pain [None]
  - Oedema peripheral [None]
  - Cardiac failure congestive [None]
  - Dyspnoea [None]
  - Small intestinal obstruction [None]
  - Pleural effusion [None]
  - Cardiac valve disease [None]
  - Abdominal adhesions [None]

NARRATIVE: CASE EVENT DATE: 20200711
